FAERS Safety Report 14317947 (Version 1)
Quarter: 2017Q4

REPORT INFORMATION
  Report Type: Spontaneous
  Country: US (occurrence: US)
  Receive Date: 20171222
  Receipt Date: 20171222
  Transmission Date: 20180321
  Serious: Yes (Disabling)
  Sender: FDA-Public Use
  Company Number: None

PATIENT
  Age: 62 Year
  Sex: Male
  Weight: 101.25 kg

DRUGS (5)
  1. DILAUDID [Concomitant]
     Active Substance: HYDROMORPHONE HYDROCHLORIDE
  2. NUCYNTA ER [Suspect]
     Active Substance: TAPENTADOL HYDROCHLORIDE
     Indication: PAIN
     Dosage: ?          QUANTITY:60 TABLET(S);?
     Route: 048
     Dates: start: 20171214, end: 20171218
  3. CARVEDILOL. [Concomitant]
     Active Substance: CARVEDILOL
  4. PROMETHAZINE [Concomitant]
     Active Substance: PROMETHAZINE\PROMETHAZINE HYDROCHLORIDE
  5. LOSARTIN [Concomitant]
     Active Substance: LOSARTAN

REACTIONS (9)
  - Constipation [None]
  - Arthralgia [None]
  - Mental impairment [None]
  - Headache [None]
  - Restlessness [None]
  - Nausea [None]
  - Abdominal pain upper [None]
  - Insomnia [None]
  - Myalgia [None]

NARRATIVE: CASE EVENT DATE: 20171218
